FAERS Safety Report 12218040 (Version 1)
Quarter: 2016Q1

REPORT INFORMATION
  Report Type: Spontaneous
  Country: US (occurrence: None)
  Receive Date: 20160328
  Receipt Date: 20160328
  Transmission Date: 20160526
  Serious: No
  Sender: FDA-Public Use
  Company Number: None

PATIENT
  Age: 78 Year
  Sex: Female
  Weight: 79.38 kg

DRUGS (13)
  1. RELPAX [Concomitant]
     Active Substance: ELETRIPTAN HYDROBROMIDE
  2. CHEWABLE MULTIVITAMINS WITH FLORIDE [Concomitant]
     Active Substance: SODIUM FLUORIDE\VITAMINS
  3. VITAMIN D3 [Concomitant]
     Active Substance: CHOLECALCIFEROL
  4. BIOTIN [Concomitant]
     Active Substance: BIOTIN
  5. CITALOPRAM [Concomitant]
     Active Substance: CITALOPRAM HYDROBROMIDE
  6. SYNTHROID [Concomitant]
     Active Substance: LEVOTHYROXINE SODIUM
  7. CHEWABLE CALCIUM [Concomitant]
  8. CELECOXIB. [Concomitant]
     Active Substance: CELECOXIB
  9. LANSOPRAZOLE. [Concomitant]
     Active Substance: LANSOPRAZOLE
  10. ASPIRIN. [Concomitant]
     Active Substance: ASPIRIN
  11. LEVOFLOXACIN SUBSTITUTED FOR LEVAQUIN [Suspect]
     Active Substance: LEVOFLOXACIN
     Indication: SINUSITIS
     Dosage: 500MG 7 TAB 1 TABLET EVERY 24 HRS. BY MOUTH WITH PLENTY OF WATER
     Route: 048
     Dates: start: 20160304, end: 20160309
  12. PREMARIN [Concomitant]
     Active Substance: ESTROGENS, CONJUGATED
  13. VESICARE [Concomitant]
     Active Substance: SOLIFENACIN SUCCINATE

REACTIONS (9)
  - Dysgraphia [None]
  - Arthritis [None]
  - Nervousness [None]
  - Abdominal pain upper [None]
  - Thinking abnormal [None]
  - Sleep disorder [None]
  - Product substitution issue [None]
  - Muscular weakness [None]
  - Intentional product use issue [None]

NARRATIVE: CASE EVENT DATE: 20160304
